FAERS Safety Report 22358937 (Version 1)
Quarter: 2023Q2

REPORT INFORMATION
  Report Type: Spontaneous
  Country: US (occurrence: US)
  Receive Date: 20230524
  Receipt Date: 20230524
  Transmission Date: 20230721
  Serious: Yes (Other)
  Sender: FDA-Public Use
  Company Number: US-ABBVIE-4765984

PATIENT

DRUGS (2)
  1. HUMIRA [Suspect]
     Active Substance: ADALIMUMAB
     Indication: Crohn^s disease
     Route: 058
  2. REMICADE [Suspect]
     Active Substance: INFLIXIMAB
     Indication: Product used for unknown indication
     Route: 065

REACTIONS (10)
  - Ileectomy [Unknown]
  - Drug ineffective [Unknown]
  - Vomiting [Unknown]
  - Abdominal pain [Recovered/Resolved]
  - Underweight [Unknown]
  - Fatigue [Unknown]
  - Medical diet [Unknown]
  - Nausea [Unknown]
  - Constipation [Unknown]
  - Gait disturbance [Unknown]
